FAERS Safety Report 5591455-8 (Version None)
Quarter: 2008Q1

REPORT INFORMATION
  Report Type: 
  Country: None (occurrence: None)
  Receive Date: 20080111
  Receipt Date: 20071128
  Transmission Date: 20080703
  Serious: Yes (Hospitalization)
  Sender: FDA-Public Use
  Company Number: 2007S1012546

PATIENT
  Age: 13 Year
  Sex: Female

DRUGS (1)
  1. AMNESTEEM [Suspect]
     Indication: ACNE
     Dosage: 40 MG; DAILY; ORAL
     Route: 048
     Dates: start: 20070918, end: 20070928

REACTIONS (9)
  - BLISTER [None]
  - GENITAL DISORDER FEMALE [None]
  - HERPES ZOSTER [None]
  - IMMUNOSUPPRESSION [None]
  - INFECTIOUS MONONUCLEOSIS [None]
  - LYMPHADENOPATHY [None]
  - MONONUCLEOSIS HETEROPHILE TEST POSITIVE [None]
  - OROPHARYNGEAL BLISTERING [None]
  - RASH [None]
